FAERS Safety Report 9822427 (Version 1)
Quarter: 2014Q1

REPORT INFORMATION
  Report Type: Spontaneous
  Country: US (occurrence: US)
  Receive Date: 20140116
  Receipt Date: 20140116
  Transmission Date: 20141002
  Serious: Yes (Congenital Anomaly)
  Sender: FDA-Public Use
  Company Number: US-FRI-1000052772

PATIENT
  Age: 0 Day
  Sex: Male

DRUGS (1)
  1. CELEXA [Suspect]
     Route: 064
     Dates: end: 20040211

REACTIONS (2)
  - Talipes [Unknown]
  - Congenital flat feet [Unknown]
